FAERS Safety Report 4623493-3 (Version None)
Quarter: 2005Q1

REPORT INFORMATION
  Report Type: 
  Country: None (occurrence: None)
  Receive Date: 20050330
  Receipt Date: 20050316
  Transmission Date: 20050727
  Serious: Yes (Other)
  Sender: FDA-Public Use
  Company Number: DE-2005-004207

PATIENT
  Age: 57 Year

DRUGS (8)
  1. FLUDARABINE PHOSPHATE [Suspect]
     Indication: STEM CELL TRANSPLANT
     Dosage: 90 MG/M2, INTRAVENOUS
     Route: 042
     Dates: start: 20030101
  2. THALIDOMIDE (THALIDOMIDE) [Concomitant]
  3. CYCLOPHOSPHAMIDE [Concomitant]
  4. ETOPOSIDE [Concomitant]
  5. DEXAMETHASONE [Concomitant]
  6. MELPHALAN (MELPHALAN) [Concomitant]
  7. CYCLOSPORINE [Concomitant]
  8. MYCOPHENOLATE MOFETIL (MYCOPHENOLATE MOFETIL) [Concomitant]

REACTIONS (5)
  - BLOOD DISORDER [None]
  - CYTOMEGALOVIRUS INFECTION [None]
  - ROTAVIRUS TEST POSITIVE [None]
  - THROMBOTIC MICROANGIOPATHY [None]
  - VIRAL DIARRHOEA [None]
